FAERS Safety Report 21740251 (Version 1)
Quarter: 2022Q4

REPORT INFORMATION
  Report Type: Spontaneous
  Country: CN (occurrence: CN)
  Receive Date: 20221216
  Receipt Date: 20221216
  Transmission Date: 20230113
  Serious: Yes (Other)
  Sender: FDA-Public Use
  Company Number: CN-009507513-2212CHN004296

PATIENT
  Age: 59 Year
  Sex: Male
  Weight: 45 kg

DRUGS (1)
  1. CILASTATIN SODIUM\IMIPENEM [Suspect]
     Active Substance: CILASTATIN SODIUM\IMIPENEM
     Indication: Haematological infection
     Dosage: 0.5 G, Q8H
     Route: 041
     Dates: start: 20221129, end: 20221130

REACTIONS (2)
  - Delirium [Recovering/Resolving]
  - Nervous system disorder [Recovered/Resolved]

NARRATIVE: CASE EVENT DATE: 20221129
